FAERS Safety Report 8010565-9 (Version None)
Quarter: 2011Q4

REPORT INFORMATION
  Report Type: 
  Country: None (occurrence: None)
  Receive Date: 20111228
  Receipt Date: 20111215
  Transmission Date: 20120403
  Serious: Yes (Other)
  Sender: FDA-Public Use
  Company Number: PHHY2011JP109915

PATIENT
  Sex: Female
  Weight: 35 kg

DRUGS (7)
  1. RABEPRAZOLE SODIUM [Concomitant]
     Indication: GASTROOESOPHAGEAL REFLUX DISEASE
     Dosage: UNK UKN, UNK
     Dates: start: 20110922
  2. CARVEDILOL [Concomitant]
     Indication: CARDIAC FAILURE
     Dosage: UNK UKN, UNK
     Dates: start: 20080531
  3. RISPERDAL [Concomitant]
     Indication: SCHIZOPHRENIA
     Dosage: UNK UKN, UNK
     Dates: start: 20111007
  4. BUP-4 [Concomitant]
     Indication: NEUROGENIC BLADDER
     Dosage: UNK UKN, UNK
     Route: 048
     Dates: start: 20091106
  5. RASILEZ [Suspect]
     Indication: HYPERTENSION
     Dosage: 150 MG, DAILY
     Dates: start: 20100921, end: 20111204
  6. ARICEPT [Concomitant]
     Indication: DEMENTIA ALZHEIMER'S TYPE
     Dosage: UNK UKN, UNK
     Dates: start: 20080828
  7. NORVASC [Concomitant]
     Dosage: UNK UKN, UNK
     Route: 048
     Dates: start: 20111205

REACTIONS (7)
  - LOSS OF CONSCIOUSNESS [None]
  - GASTROOESOPHAGEAL REFLUX DISEASE [None]
  - NEPHROGENIC ANAEMIA [None]
  - LOGORRHOEA [None]
  - EATING DISORDER [None]
  - BLOOD PRESSURE DECREASED [None]
  - SUICIDAL IDEATION [None]
